FAERS Safety Report 22006670 (Version 1)
Quarter: 2023Q1

REPORT INFORMATION
  Report Type: Spontaneous
  Country: FR (occurrence: FR)
  Receive Date: 20230217
  Receipt Date: 20230217
  Transmission Date: 20230418
  Serious: Yes (Hospitalization)
  Sender: FDA-Public Use
  Company Number: None

PATIENT
  Age: 71 Year
  Sex: Female

DRUGS (1)
  1. LETROZOLE [Suspect]
     Active Substance: LETROZOLE
     Indication: Herpes zoster
     Dosage: 1 DOSAGE FORM, QD
     Route: 048
     Dates: start: 2014

REACTIONS (1)
  - Radiation skin injury [Not Recovered/Not Resolved]

NARRATIVE: CASE EVENT DATE: 20221213
